FAERS Safety Report 13320202 (Version 1)
Quarter: 2017Q1

REPORT INFORMATION
  Report Type: Spontaneous
  Country: AU (occurrence: AU)
  Receive Date: 20170310
  Receipt Date: 20170310
  Transmission Date: 20170428
  Serious: Yes (Other)
  Sender: FDA-Public Use
  Company Number: AU-009507513-1703AUS002814

PATIENT
  Sex: Female
  Weight: 25 kg

DRUGS (1)
  1. SINGULAIR [Suspect]
     Active Substance: MONTELUKAST SODIUM
     Dosage: 1 TABLET BEFORE BED DAILY
     Route: 048
     Dates: start: 20141214, end: 20160720

REACTIONS (3)
  - Crying [Recovering/Resolving]
  - Emotional distress [Recovering/Resolving]
  - Sleep terror [Recovering/Resolving]
